FAERS Safety Report 12722946 (Version 1)
Quarter: 2016Q3

REPORT INFORMATION
  Report Type: Spontaneous
  Country: IT (occurrence: IT)
  Receive Date: 20160908
  Receipt Date: 20160908
  Transmission Date: 20161109
  Serious: Yes (Other)
  Sender: FDA-Public Use
  Company Number: IT-ROCHE-1818802

PATIENT
  Age: 59 Year
  Sex: Female

DRUGS (6)
  1. HERCEPTIN [Suspect]
     Active Substance: TRASTUZUMAB
     Indication: BREAST CANCER
     Dosage: POWDER FOR CONCENTRATE FOR SOLUTION FOR INTRAVENOUS INFUSION?1 VIAL FOR INTRAVENOUS USE
     Route: 042
  2. TRIMETON (ITALY) [Concomitant]
     Indication: PROPHYLAXIS
     Dosage: ^10 MG/1 ML SOLUTION FOR INJECTION^
     Route: 042
  3. GRANISETRON [Concomitant]
     Active Substance: GRANISETRON
     Indication: PROPHYLAXIS OF NAUSEA AND VOMITING
     Dosage: 5 X 3 ML GLASS VIALS
     Route: 042
  4. PACLITAXEL. [Suspect]
     Active Substance: PACLITAXEL
     Indication: BREAST CANCER
     Route: 042
  5. SOLDESAM [Concomitant]
     Active Substance: DEXAMETHASONE
     Indication: INFLAMMATION
     Dosage: 4 MG/ML 3 X 1 ML VIALS
     Route: 042
  6. ZANTAC [Concomitant]
     Active Substance: RANITIDINE HYDROCHLORIDE
     Indication: PROPHYLAXIS
     Dosage: 50 MG/5 ML 10 VIALS
     Route: 042

REACTIONS (3)
  - Urticaria [Unknown]
  - Rash [Unknown]
  - Syncope [Unknown]

NARRATIVE: CASE EVENT DATE: 20160624
